FAERS Safety Report 20088495 (Version 4)
Quarter: 2021Q4

REPORT INFORMATION
  Report Type: Report from Study
  Country: JP (occurrence: JP)
  Receive Date: 20211119
  Receipt Date: 20211213
  Transmission Date: 20220303
  Serious: Yes (Hospitalization, Other)
  Sender: FDA-Public Use
  Company Number: JP-SAKK-2021SA380458AA

PATIENT
  Age: 72 Year
  Sex: Male
  Weight: 66.3 kg

DRUGS (7)
  1. ISATUXIMAB [Suspect]
     Active Substance: ISATUXIMAB
     Indication: Plasma cell myeloma
     Dosage: 10 MG/KG, QW
     Route: 041
     Dates: start: 20200916, end: 20201007
  2. DEXAMETHASONE [Concomitant]
     Active Substance: DEXAMETHASONE
     Indication: Plasma cell myeloma
     Dosage: 13.2 (UNIT, UNSPECIFIED), QW
     Route: 065
     Dates: start: 20200916, end: 20200930
  3. DEXAMETHASONE [Concomitant]
     Active Substance: DEXAMETHASONE
     Dosage: 33.00 (UNIT, UNSPECIFIED), 1X
     Route: 065
     Dates: start: 20201007, end: 20201007
  4. POMALIDOMIDE [Concomitant]
     Active Substance: POMALIDOMIDE
     Indication: Plasma cell myeloma
     Dosage: DAILY DOSE: 1 (UNIT, UNSPECIFIED)
     Route: 065
     Dates: start: 20200916, end: 20201006
  5. RESTAMIN [DIPHENHYDRAMINE HYDROCHLORIDE] [Concomitant]
     Indication: Prophylaxis
     Dosage: 50 MG, QW
     Route: 048
     Dates: start: 20200916, end: 20201007
  6. CALONAL [Concomitant]
     Active Substance: ACETAMINOPHEN
     Indication: Prophylaxis
     Dosage: 900 MG, QW
     Route: 048
     Dates: start: 20200916, end: 20201007
  7. FAMOTIDINE [Concomitant]
     Active Substance: FAMOTIDINE
     Indication: Prophylaxis
     Dosage: 20 MG, QW
     Route: 065
     Dates: start: 20200916, end: 20201007

REACTIONS (5)
  - Enterocolitis [Recovering/Resolving]
  - Platelet count decreased [Recovering/Resolving]
  - Infusion related reaction [Recovered/Resolved]
  - Dyspnoea [Recovered/Resolved]
  - Neutrophil count decreased [Recovering/Resolving]

NARRATIVE: CASE EVENT DATE: 20200916
